FAERS Safety Report 10587725 (Version 1)
Quarter: 2014Q4

REPORT INFORMATION
  Report Type: Spontaneous
  Country: BR (occurrence: BR)
  Receive Date: 20141117
  Receipt Date: 20141117
  Transmission Date: 20150529
  Serious: Yes (Other)
  Sender: FDA-Public Use
  Company Number: BR-PFIZER INC-2014314942

PATIENT
  Age: 52 Year
  Sex: Female
  Weight: 70 kg

DRUGS (4)
  1. CELEBRA [Concomitant]
     Active Substance: CELECOXIB
     Indication: POLYNEUROPATHY
     Dosage: 200 MG (ONE ^TABLET^), 2X/DAY (EVERY 12 HOURS)
  2. CODATEN [Concomitant]
     Active Substance: CODEINE PHOSPHATE\DICLOFENAC SODIUM
     Dosage: ONE TABLET OF UNSPECIFIED DOSAGE, 2X/DAY
  3. VENLAFAXINE [Concomitant]
     Active Substance: VENLAFAXINE HYDROCHLORIDE
     Indication: ANTIDEPRESSANT THERAPY
     Dosage: ONE TABLET OF UNSPECIFIED DOSAGE, 2X/DAY (EVERY 12 HOURS)
     Dates: start: 2008
  4. LYRICA [Suspect]
     Active Substance: PREGABALIN
     Indication: POLYNEUROPATHY
     Dosage: 75 MG (ONE ^TABLET^), 2X/DAY (EVERY 12 HOURS)
     Route: 048

REACTIONS (4)
  - Fall [Unknown]
  - Intervertebral disc protrusion [Unknown]
  - Disease progression [Unknown]
  - Neuropathy peripheral [Unknown]

NARRATIVE: CASE EVENT DATE: 201304
